FAERS Safety Report 12245379 (Version 1)
Quarter: 2016Q2

REPORT INFORMATION
  Report Type: Spontaneous
  Country: AT (occurrence: AT)
  Receive Date: 20160407
  Receipt Date: 20160407
  Transmission Date: 20160815
  Serious: Yes (Other)
  Sender: FDA-Public Use
  Company Number: AT-PFIZER INC-2016195091

PATIENT
  Age: 86 Year
  Sex: Female

DRUGS (2)
  1. TRESLEEN [Suspect]
     Active Substance: SERTRALINE HYDROCHLORIDE
     Indication: SHOCK
     Dosage: 50 MG, 1X/DAY
     Route: 048
  2. XALATAN [Suspect]
     Active Substance: LATANOPROST
     Indication: OPEN ANGLE GLAUCOMA
     Dosage: 1 GTT PER EYE, 1X/DAY

REACTIONS (2)
  - Vision blurred [Unknown]
  - Visual acuity reduced [Unknown]
